FAERS Safety Report 6243008-6 (Version None)
Quarter: 2009Q2

REPORT INFORMATION
  Report Type: 
  Country: None (occurrence: None)
  Receive Date: 20090624
  Receipt Date: 20090612
  Transmission Date: 20091009
  Serious: Yes (Hospitalization)
  Sender: FDA-Public Use
  Company Number: FR-PFIZER INC-2009226352

PATIENT
  Age: 77 Year

DRUGS (4)
  1. SUNITINIB MALATE [Suspect]
     Dosage: 25 MG, 1X/DAY
     Route: 048
     Dates: start: 20081029
  2. AMLODIPINE [Concomitant]
     Dosage: 5 MG, UNK
  3. SANDOSTATIN [Concomitant]
     Dosage: 30 MG, UNK
  4. DOLIPRANE [Concomitant]
     Dosage: 500 MG, UNK

REACTIONS (1)
  - GENERAL PHYSICAL HEALTH DETERIORATION [None]
